FAERS Safety Report 7569859-3 (Version None)
Quarter: 2011Q2

REPORT INFORMATION
  Report Type: 
  Country: None (occurrence: None)
  Receive Date: 20110624
  Receipt Date: 20110620
  Transmission Date: 20111010
  Serious: Yes (Hospitalization)
  Sender: FDA-Public Use
  Company Number: US-MEDIMMUNE-MEDI-0012751

PATIENT
  Sex: Male

DRUGS (2)
  1. SYNAGIS [Suspect]
     Dates: start: 20110322, end: 20110322
  2. SYNAGIS [Suspect]
     Dates: start: 20101027, end: 20110218

REACTIONS (2)
  - ADENOVIRUS INFECTION [None]
  - RESPIRATORY SYNCYTIAL VIRUS INFECTION [None]
